FAERS Safety Report 14248067 (Version 2)
Quarter: 2018Q2

REPORT INFORMATION
  Report Type: Spontaneous
  Country: DE (occurrence: DE)
  Receive Date: 20171204
  Receipt Date: 20180405
  Transmission Date: 20180711
  Serious: Yes (Hospitalization, Disabling)
  Sender: FDA-Public Use
  Company Number: DE-SA-2017SA240005

PATIENT
  Age: 55 Year
  Sex: Female
  Weight: 84 kg

DRUGS (13)
  1. GYNOKADIN [Concomitant]
     Active Substance: ESTRADIOL
     Dosage: FREQUENCY:1 IN MORNING
     Route: 065
  2. PRALUENT [Suspect]
     Active Substance: ALIROCUMAB
     Indication: TYPE IIA HYPERLIPIDAEMIA
     Route: 058
     Dates: start: 20171122, end: 201801
  3. PANTOPRAZOLE [Concomitant]
     Active Substance: PANTOPRAZOLE
     Dosage: STRENGTH:1 IN MORNING, 1 IN EVENING, STRENGTH:40 MG,ENTERIC-COATED CAPSULES
     Route: 065
  4. BISOHEXAL [Concomitant]
     Active Substance: BISOPROLOL FUMARATE
     Dosage: STRENGTH: 2,5 AND FREQUENCY:2 IN MORNING, 2 IN EVENING
     Route: 065
  5. PRALUENT [Suspect]
     Active Substance: ALIROCUMAB
     Indication: TYPE IIA HYPERLIPIDAEMIA
     Route: 058
     Dates: start: 20180207
  6. ALIROCUMAB PREFILLED PEN [Suspect]
     Active Substance: ALIROCUMAB
     Indication: TYPE IIA HYPERLIPIDAEMIA
     Dates: start: 20171122, end: 201801
  7. NEPHROTRANS [Concomitant]
     Active Substance: SODIUM BICARBONATE
     Dosage: 1 IN MORNING, 1 IN EVENING,ENTERIC-COATED CAPSULES
     Route: 065
  8. FUROBETA [Concomitant]
     Dosage: STRENGTH: 40 MG, FREQUENCY:HALF IN MORNING
     Route: 065
  9. CALCITRIOL. [Concomitant]
     Active Substance: CALCITRIOL
     Dosage: FREQUENCY:3X / WEEK: MON, WED, FRI. 1 IN EVENING
     Route: 065
  10. FAMENITA [Concomitant]
     Active Substance: PROGESTERONE
     Dosage: STRENGTH: 100 MG AND FREQUENCY:1 IN EVENING
     Route: 065
  11. ALIROCUMAB PREFILLED PEN [Suspect]
     Active Substance: ALIROCUMAB
     Indication: TYPE IIA HYPERLIPIDAEMIA
     Dates: start: 20180207
  12. HERZASS ^RATIOPHARM^ [Concomitant]
     Dosage: STRENGTH: 100 MG, FREQUENCY:ONE IN MORNING
     Route: 065
  13. DEKRISTOL [Concomitant]
     Active Substance: CHOLECALCIFEROL

REACTIONS (3)
  - Nausea [Recovered/Resolved]
  - Vomiting [Recovered/Resolved]
  - Facial paresis [Recovered/Resolved]

NARRATIVE: CASE EVENT DATE: 20171124
